FAERS Safety Report 5339025-0 (Version None)
Quarter: 2007Q2

REPORT INFORMATION
  Report Type: 
  Country: None (occurrence: None)
  Receive Date: 20070402
  Receipt Date: 20061212
  Transmission Date: 20071010
  Serious: Yes (Other)
  Sender: FDA-Public Use
  Company Number: 149679USA

PATIENT
  Age: 10 Year
  Sex: Male
  Weight: 27.7 kg

DRUGS (3)
  1. LAMOTRIGINE [Suspect]
     Indication: EPILEPSY
     Dosage: (25 MG), ORAL
     Route: 048
     Dates: start: 20060920, end: 20060926
  2. VALPROIC ACID [Concomitant]
  3. LORAZEPAM [Concomitant]

REACTIONS (3)
  - CONVULSION [None]
  - DRUG INEFFECTIVE [None]
  - RASH [None]
